FAERS Safety Report 8208494-0 (Version None)
Quarter: 2012Q1

REPORT INFORMATION
  Report Type: 
  Country: None (occurrence: None)
  Receive Date: 20120314
  Receipt Date: 20120305
  Transmission Date: 20120608
  Serious: Yes (Hospitalization)
  Sender: FDA-Public Use
  Company Number: US-JNJFOC-20120302409

PATIENT
  Sex: Male
  Weight: 99.79 kg

DRUGS (2)
  1. PEPCID [Concomitant]
  2. XARELTO [Suspect]
     Indication: JOINT RESURFACING SURGERY
     Route: 048
     Dates: start: 20120220, end: 20120101

REACTIONS (1)
  - HYPERSENSITIVITY [None]
